FAERS Safety Report 9733114 (Version 1)
Quarter: 2013Q4

REPORT INFORMATION
  Report Type: Spontaneous
  Country: FR (occurrence: FR)
  Receive Date: 20131205
  Receipt Date: 20131205
  Transmission Date: 20140711
  Serious: Yes (Other)
  Sender: FDA-Public Use
  Company Number: PHHY2013FR138498

PATIENT
  Age: 60 Year
  Sex: Female

DRUGS (3)
  1. PACLITAXEL EBEWE [Suspect]
     Indication: BREAST CANCER
     Dosage: 150 MG, QW (THREE IN FOUR WEEKS)
     Route: 042
     Dates: start: 20120504, end: 20121113
  2. ZOMETA [Concomitant]
     Indication: METASTASES TO BONE
     Dosage: 4 MG, QMO
     Route: 042
     Dates: start: 201201, end: 201211
  3. AVASTIN [Concomitant]
     Indication: BREAST CANCER
     Dosage: 500 MG, (ONE IN TWO WEEKS)
     Route: 042
     Dates: start: 20120504, end: 20121113

REACTIONS (2)
  - Visual acuity reduced [Recovered/Resolved]
  - Macular oedema [Recovered/Resolved]
